FAERS Safety Report 13352875 (Version 1)
Quarter: 2017Q1

REPORT INFORMATION
  Report Type: Spontaneous
  Country: MD (occurrence: MD)
  Receive Date: 20170320
  Receipt Date: 20170320
  Transmission Date: 20170429
  Serious: Yes (Hospitalization, Disabling)
  Sender: FDA-Public Use
  Company Number: MD-IPCA LABORATORIES LIMITED-IPC201703-000270

PATIENT
  Age: 34 Year
  Sex: Female

DRUGS (3)
  1. WARFARIN [Suspect]
     Active Substance: WARFARIN
     Indication: DEEP VEIN THROMBOSIS
  2. NADROPARIN [Concomitant]
     Active Substance: NADROPARIN
  3. NADROPARIN [Concomitant]
     Active Substance: NADROPARIN
     Indication: DEEP VEIN THROMBOSIS

REACTIONS (3)
  - Foot amputation [Unknown]
  - Deep vein thrombosis [Unknown]
  - Dry gangrene [Unknown]
